FAERS Safety Report 8863274 (Version 2)
Quarter: 2013Q1

REPORT INFORMATION
  Report Type: Spontaneous
  Country: US (occurrence: US)
  Receive Date: 20121025
  Receipt Date: 20130208
  Transmission Date: 20140127
  Serious: Yes (Life-Threatening, Hospitalization)
  Sender: FDA-Public Use
  Company Number: US-BAYER-2012-111649

PATIENT
  Age: 39 Year
  Sex: Female
  Weight: 84.35 kg

DRUGS (3)
  1. YAZ [Suspect]
     Indication: CONTRACEPTION
     Dosage: UNK
     Dates: start: 20071002, end: 20081114
  2. YAZ [Suspect]
     Indication: CONTRACEPTION
     Dosage: UNK
     Dates: start: 2007, end: 2008
  3. YASMIN [Suspect]
     Indication: CONTRACEPTION
     Dosage: UNK
     Dates: start: 2007, end: 2008

REACTIONS (7)
  - Deep vein thrombosis [None]
  - Injury [None]
  - Emotional distress [None]
  - Fear of disease [None]
  - Anxiety [None]
  - Anhedonia [None]
  - Pain in extremity [None]
